FAERS Safety Report 7322467-1 (Version None)
Quarter: 2011Q1

REPORT INFORMATION
  Report Type: 
  Country: None (occurrence: None)
  Receive Date: 20110125
  Receipt Date: 20101006
  Transmission Date: 20110831
  Serious: No
  Sender: FDA-Public Use
  Company Number: US-003902

PATIENT
  Sex: Male
  Weight: 83.9154 kg

DRUGS (9)
  1. ALK ARTEMISIA VULGARIS [Concomitant]
  2. ACCOMIN CENTRUM [Concomitant]
  3. FLAXSEED OIL [Concomitant]
  4. SILVER [Concomitant]
  5. ASCORBIC ACID W/FOLIC ACID/IRON/VITAMIN B12 [Concomitant]
  6. FIRMAGON [Suspect]
     Indication: PROSTATE CANCER METASTATIC
     Dosage: (240 MG 1X SUBCUTANEOUS), (80 MG 1X/MONTH SUBCUTANEOUS)
     Route: 058
     Dates: start: 20100629, end: 20100921
  7. FIRMAGON [Suspect]
     Indication: PROSTATE CANCER METASTATIC
     Dosage: (240 MG 1X SUBCUTANEOUS), (80 MG 1X/MONTH SUBCUTANEOUS)
     Route: 058
     Dates: start: 20100601, end: 20100601
  8. BENICAR [Concomitant]
  9. ZANTAC [Concomitant]

REACTIONS (1)
  - INJECTION SITE ERYTHEMA [None]
